FAERS Safety Report 14312410 (Version 1)
Quarter: 2017Q4

REPORT INFORMATION
  Report Type: Spontaneous
  Country: US (occurrence: US)
  Receive Date: 20171221
  Receipt Date: 20171221
  Transmission Date: 20180321
  Serious: Yes (Other)
  Sender: FDA-Public Use
  Company Number: US-CIPLA (EU) LIMITED-2017US25333

PATIENT

DRUGS (2)
  1. BEVACIZUMAB. [Suspect]
     Active Substance: BEVACIZUMAB
     Indication: OLIGODENDROGLIOMA
     Dosage: 10 MG/KG, UNK DAYS 1 AND 15 OF EACH CYCLE
  2. IRINOTECAN [Suspect]
     Active Substance: IRINOTECAN
     Indication: OLIGODENDROGLIOMA
     Dosage: UNK
     Route: 065

REACTIONS (2)
  - Disease progression [None]
  - Haemorrhage intracranial [Unknown]
